FAERS Safety Report 6248043-X (Version None)
Quarter: 2009Q2

REPORT INFORMATION
  Report Type: 
  Country: None (occurrence: None)
  Receive Date: 20090626
  Receipt Date: 20090624
  Transmission Date: 20091009
  Serious: Yes (Death, Hospitalization)
  Sender: FDA-Public Use
  Company Number: ZA-B.I. PHARMACEUTICALS,INC./RIDGEFIELD-2009-BP-07646BP

PATIENT
  Sex: Male
  Weight: 6.5 kg

DRUGS (4)
  1. BLIND (NEVIRAPINE) [Suspect]
     Indication: PROPHYLAXIS AGAINST HIV INFECTION
     Route: 048
     Dates: start: 20090116, end: 20090612
  2. MULTIVITAMIN SYRUP [Concomitant]
  3. CO-TRAMOXAZOLE [Concomitant]
  4. IRON SUPPLEMENTATION [Concomitant]

REACTIONS (1)
  - DIARRHOEA [None]
